FAERS Safety Report 8489708-9 (Version None)
Quarter: 2012Q3

REPORT INFORMATION
  Report Type: 
  Country: None (occurrence: None)
  Receive Date: 20120705
  Receipt Date: 20120629
  Transmission Date: 20120928
  Serious: Yes (Death)
  Sender: FDA-Public Use
  Company Number: RU-GLAXOSMITHKLINE-B0792634A

PATIENT
  Sex: Male
  Weight: 98 kg

DRUGS (2)
  1. DEXAMETHASONE SODIUM PHOSPHATE [Concomitant]
     Indication: ACUTE LYMPHOCYTIC LEUKAEMIA
     Route: 042
     Dates: start: 20120229, end: 20120305
  2. ATRIANCE [Suspect]
     Indication: ACUTE LYMPHOCYTIC LEUKAEMIA
     Dosage: 3000MG PER DAY
     Route: 042
     Dates: start: 20120229, end: 20120302

REACTIONS (12)
  - DIARRHOEA [None]
  - SEPTIC SHOCK [None]
  - SEPSIS [None]
  - HEPATITIS TOXIC [None]
  - PANCYTOPENIA [None]
  - ASPARTATE AMINOTRANSFERASE INCREASED [None]
  - ALANINE AMINOTRANSFERASE INCREASED [None]
  - DEATH [None]
  - BLOOD ALBUMIN DECREASED [None]
  - TRANSAMINASES DECREASED [None]
  - BLOOD BILIRUBIN INCREASED [None]
  - ENTEROCOLITIS HAEMORRHAGIC [None]
